FAERS Safety Report 7296838-6 (Version None)
Quarter: 2011Q1

REPORT INFORMATION
  Report Type: 
  Country: None (occurrence: None)
  Receive Date: 20110204
  Receipt Date: 20110131
  Transmission Date: 20110831
  Serious: Yes (Hospitalization, Other)
  Sender: FDA-Public Use
  Company Number: CIP08000966

PATIENT
  Age: 86 Year
  Sex: Female

DRUGS (4)
  1. LOVASTATIN [Concomitant]
  2. ATENOLOL [Concomitant]
  3. CALCIUM (CALCIUM) [Concomitant]
  4. ACTONEL [Suspect]
     Dosage: 35 MG ONCE WEEKLY, ORAL
     Route: 048
     Dates: start: 20030101

REACTIONS (2)
  - FALL [None]
  - HIP FRACTURE [None]
